FAERS Safety Report 6385247-X (Version None)
Quarter: 2009Q4

REPORT INFORMATION
  Report Type: 
  Country: None (occurrence: None)
  Receive Date: 20091002
  Receipt Date: 20081112
  Transmission Date: 20100525
  Serious: No
  Sender: FDA-Public Use
  Company Number: US-ASTRAZENECA-2007UW02417

PATIENT
  Age: 68 Year
  Sex: Female
  Weight: 77.1 kg

DRUGS (8)
  1. ARIMIDEX [Suspect]
     Indication: BREAST CANCER
     Route: 048
  2. DIPENTUM [Concomitant]
  3. LIPITOR [Concomitant]
  4. TOPROL-XL [Concomitant]
     Route: 048
  5. M.V.I. [Concomitant]
  6. CRESTOR [Concomitant]
     Route: 048
  7. ACECOL [Concomitant]
  8. AMBIEN [Concomitant]

REACTIONS (3)
  - HALLUCINATION [None]
  - INSOMNIA [None]
  - WEIGHT INCREASED [None]
